FAERS Safety Report 8815662 (Version 1)
Quarter: 2012Q4

REPORT INFORMATION
  Report Type: 
  Country: US (occurrence: US)
  Receive Date: 20120928
  Receipt Date: 20120928
  Transmission Date: 20130627
  Serious: Yes (Hospitalization, Other)
  Sender: FDA-Public Use
  Company Number: US-ABBOTT-12P-163-0981687-00

PATIENT
  Sex: Female

DRUGS (2)
  1. NORVIR [Suspect]
     Indication: PRODUCT USED FOR UNKNOWN INDICATION
  2. EPIDURAL STEROID [Suspect]
     Indication: BACK PAIN
     Dates: start: 2012, end: 2012

REACTIONS (9)
  - Spinal fracture [Unknown]
  - Muscular weakness [Unknown]
  - Fall [Unknown]
  - Swelling face [Unknown]
  - Myalgia [Unknown]
  - Tremor [Unknown]
  - Dysphonia [Unknown]
  - Back pain [Unknown]
  - Adrenocortical insufficiency acute [Unknown]
